FAERS Safety Report 18711653 (Version 2)
Quarter: 2021Q3

REPORT INFORMATION
  Report Type: Report from Study
  Country: FR (occurrence: FR)
  Receive Date: 20210107
  Receipt Date: 20210708
  Transmission Date: 20211014
  Serious: Yes (Hospitalization, Other)
  Sender: FDA-Public Use
  Company Number: FR-SHIRE-FR201700055

PATIENT
  Age: 61 Year
  Sex: Female
  Weight: 58.3 kg

DRUGS (62)
  1. TEDUGLUTIDE [Suspect]
     Active Substance: TEDUGLUTIDE
     Dosage: 2.6 MILLIGRAM, 1X/DAY:QD
     Route: 058
     Dates: start: 20170217
  2. TEDUGLUTIDE [Suspect]
     Active Substance: TEDUGLUTIDE
     Dosage: 2.6 MILLIGRAM, 1X/DAY:QD
     Route: 058
     Dates: start: 20170217
  3. TEDUGLUTIDE [Suspect]
     Active Substance: TEDUGLUTIDE
     Dosage: 3.0 MILLIGRAM (0.05 MG/KG, 7 TED DOSES PER WEEK)
     Route: 058
     Dates: start: 20160404, end: 20160824
  4. TEDUGLUTIDE [Suspect]
     Active Substance: TEDUGLUTIDE
     Dosage: 2.6 MILLIGRAM (0.05 MG/KG, 7 TED DOSES PER WEEK)
     Route: 058
     Dates: start: 20160909, end: 20160914
  5. TEDUGLUTIDE [Suspect]
     Active Substance: TEDUGLUTIDE
     Dosage: 2.8 MILLIGRAM (0.05 MG/KG, 7 TED DOSES PER WEEK)
     Route: 058
     Dates: start: 20160915, end: 20161107
  6. TEDUGLUTIDE [Suspect]
     Active Substance: TEDUGLUTIDE
     Dosage: 2.6 MILLIGRAM (0.05 MG/KG, 7 TED DOSES PER WEEK)
     Route: 058
     Dates: start: 20170303, end: 20170411
  7. TEDUGLUTIDE [Suspect]
     Active Substance: TEDUGLUTIDE
     Dosage: 2.6 MILLIGRAM (0.05 MG/KG, 7 TED DOSES PER WEEK)
     Route: 058
     Dates: start: 20170303, end: 20170411
  8. TEDUGLUTIDE [Suspect]
     Active Substance: TEDUGLUTIDE
     Dosage: 2.6 MILLIGRAM (0.05 MG/KG, 7 TED DOSES PER WEEK)
     Route: 058
     Dates: start: 20170303, end: 20170411
  9. ESCITALOPRAM [Concomitant]
     Active Substance: ESCITALOPRAM OXALATE
     Indication: ANXIETY
     Dosage: 10 MG, 1X/DAY:QD
     Route: 048
  10. COUMADINE [Concomitant]
     Active Substance: WARFARIN SODIUM
     Indication: ANTICOAGULANT THERAPY
     Dosage: 1 MG, 1X/DAY:QD
     Route: 048
     Dates: start: 201612
  11. BACTRIM [Concomitant]
     Active Substance: SULFAMETHOXAZOLE\TRIMETHOPRIM
     Indication: SEPSIS
     Dosage: UNK
     Route: 065
  12. MAGNESIUM SULFATE. [Concomitant]
     Active Substance: MAGNESIUM SULFATE
     Indication: SHORT-BOWEL SYNDROME
     Dosage: 1500 MILLIGRAM, CONTINOUS RUNNING
     Route: 042
     Dates: start: 201911
  13. CALCIUM CARBONATE. [Concomitant]
     Active Substance: CALCIUM CARBONATE
     Indication: SHORT-BOWEL SYNDROME
     Dosage: 500 MILLIGRAM, QD
     Route: 048
     Dates: start: 20200214
  14. TEDUGLUTIDE [Suspect]
     Active Substance: TEDUGLUTIDE
     Indication: SHORT-BOWEL SYNDROME
     Dosage: 3 MILLIGRAM, 1X/DAY:QD (0.05 MG/KG, 7 TED DOSES PER WEEK)
     Route: 058
     Dates: start: 20160404, end: 20160911
  15. TEDUGLUTIDE [Suspect]
     Active Substance: TEDUGLUTIDE
     Dosage: 2.6 MILLIGRAM, 1X/DAY:QD
     Route: 058
     Dates: start: 20160912, end: 20161206
  16. TEDUGLUTIDE [Suspect]
     Active Substance: TEDUGLUTIDE
     Dosage: 2.6 MILLIGRAM, 1X/DAY:QD
     Route: 058
     Dates: start: 20160912, end: 20161206
  17. TEDUGLUTIDE [Suspect]
     Active Substance: TEDUGLUTIDE
     Dosage: 2.8 MILLIGRAM (0.05 MG/KG, 7 TED DOSES PER WEEK)
     Route: 058
     Dates: start: 20170214, end: 20170220
  18. TEDUGLUTIDE [Suspect]
     Active Substance: TEDUGLUTIDE
     Dosage: 2.8 MILLIGRAM (0.05 MG/KG, 7 TED DOSES PER WEEK)
     Route: 058
     Dates: start: 20170412, end: 20181129
  19. BICARBONATE SODIUM [Concomitant]
     Active Substance: SODIUM BICARBONATE
     Indication: SUPPLEMENTATION THERAPY
     Dosage: 500 MG, 2X/DAY:BID
     Route: 048
  20. LOPERAMIDE [Concomitant]
     Active Substance: LOPERAMIDE
     Indication: DIARRHOEA
     Dosage: 6 MG, 3X/DAY:TID
     Route: 048
     Dates: start: 201612
  21. COUMADINE [Concomitant]
     Active Substance: WARFARIN SODIUM
     Indication: PROPHYLAXIS
  22. CONTRAMAL [Concomitant]
     Active Substance: TRAMADOL HYDROCHLORIDE
     Indication: BACK PAIN
     Dosage: UNK
     Route: 065
  23. TEDUGLUTIDE [Suspect]
     Active Substance: TEDUGLUTIDE
     Indication: SHORT-BOWEL SYNDROME
     Dosage: 3 MILLIGRAM, 1X/DAY:QD (0.05 MG/KG, 7 TED DOSES PER WEEK)
     Route: 058
     Dates: start: 20160404, end: 20160911
  24. TEDUGLUTIDE [Suspect]
     Active Substance: TEDUGLUTIDE
     Dosage: 2.6 MILLIGRAM, 1X/DAY:QD
     Route: 058
     Dates: start: 20160912, end: 20161206
  25. TEDUGLUTIDE [Suspect]
     Active Substance: TEDUGLUTIDE
     Dosage: 2.6 MILLIGRAM, 1X/DAY:QD
     Route: 058
     Dates: start: 20170217
  26. TEDUGLUTIDE [Suspect]
     Active Substance: TEDUGLUTIDE
     Dosage: 2.8 MILLIGRAM (0.05 MG/KG, 7 TED DOSES PER WEEK)
     Route: 058
     Dates: start: 20160825, end: 20160908
  27. TEDUGLUTIDE [Suspect]
     Active Substance: TEDUGLUTIDE
     Dosage: 2.8 MILLIGRAM (0.05 MG/KG, 7 TED DOSES PER WEEK)
     Route: 058
     Dates: start: 20160825, end: 20160908
  28. TEDUGLUTIDE [Suspect]
     Active Substance: TEDUGLUTIDE
     Dosage: 2.6 MILLIGRAM (0.05 MG/KG, 7 TED DOSES PER WEEK)
     Route: 058
     Dates: start: 20161108, end: 20161206
  29. TEDUGLUTIDE [Suspect]
     Active Substance: TEDUGLUTIDE
     Dosage: 2.8 MILLIGRAM (0.05 MG/KG, 7 TED DOSES PER WEEK)
     Route: 058
     Dates: start: 20170412, end: 20181129
  30. TEDUGLUTIDE [Suspect]
     Active Substance: TEDUGLUTIDE
     Indication: SHORT-BOWEL SYNDROME
     Dosage: 3 MILLIGRAM, 1X/DAY:QD (0.05 MG/KG, 7 TED DOSES PER WEEK)
     Route: 058
     Dates: start: 20160404, end: 20160911
  31. TEDUGLUTIDE [Suspect]
     Active Substance: TEDUGLUTIDE
     Dosage: 2.8 MILLIGRAM (0.05 MG/KG, 7 TED DOSES PER WEEK)
     Route: 058
     Dates: start: 20160915, end: 20161107
  32. TEDUGLUTIDE [Suspect]
     Active Substance: TEDUGLUTIDE
     Dosage: 2.8 MILLIGRAM (0.05 MG/KG, 7 TED DOSES PER WEEK)
     Route: 058
     Dates: start: 20160915, end: 20161107
  33. TEDUGLUTIDE [Suspect]
     Active Substance: TEDUGLUTIDE
     Dosage: 2.6 MILLIGRAM (0.05 MG/KG, 7 TED DOSES PER WEEK)
     Route: 058
     Dates: start: 20161108, end: 20161206
  34. TEDUGLUTIDE [Suspect]
     Active Substance: TEDUGLUTIDE
     Dosage: 2.8 MILLIGRAM (0.05 MG/KG, 7 TED DOSES PER WEEK)
     Route: 058
     Dates: start: 20170214, end: 20170220
  35. TEDUGLUTIDE [Suspect]
     Active Substance: TEDUGLUTIDE
     Dosage: 2.6 MILLIGRAM (0.05 MG/KG, 7 TED DOSES PER WEEK)
     Route: 058
     Dates: start: 20170303, end: 20170411
  36. TEDUGLUTIDE [Suspect]
     Active Substance: TEDUGLUTIDE
     Dosage: 2.4 MILLIGRAM (0.05 MG/KG, 7 TED DOSES PER WEEK)
     Route: 058
     Dates: start: 20181130
  37. TEDUGLUTIDE [Suspect]
     Active Substance: TEDUGLUTIDE
     Dosage: 2.4 MILLIGRAM (0.05 MG/KG, 7 TED DOSES PER WEEK)
     Route: 058
     Dates: start: 20181130
  38. CALCIUM [Concomitant]
     Active Substance: CALCIUM
     Indication: SUPPLEMENTATION THERAPY
     Dosage: 1.0 G, 1X/DAY:QD
     Route: 048
  39. COLECALCIFEROL [Concomitant]
     Active Substance: CHOLECALCIFEROL
     Indication: SHORT-BOWEL SYNDROME
     Dosage: 1000 INTERNATIONAL UNIT, MONTHLY
     Route: 048
     Dates: start: 20200214
  40. TEDUGLUTIDE [Suspect]
     Active Substance: TEDUGLUTIDE
     Dosage: 3.0 MILLIGRAM (0.05 MG/KG, 7 TED DOSES PER WEEK)
     Route: 058
     Dates: start: 20160404, end: 20160824
  41. TEDUGLUTIDE [Suspect]
     Active Substance: TEDUGLUTIDE
     Dosage: 2.8 MILLIGRAM (0.05 MG/KG, 7 TED DOSES PER WEEK)
     Route: 058
     Dates: start: 20160825, end: 20160908
  42. TEDUGLUTIDE [Suspect]
     Active Substance: TEDUGLUTIDE
     Dosage: 2.8 MILLIGRAM (0.05 MG/KG, 7 TED DOSES PER WEEK)
     Route: 058
     Dates: start: 20170412, end: 20181129
  43. TEDUGLUTIDE [Suspect]
     Active Substance: TEDUGLUTIDE
     Dosage: 2.4 MILLIGRAM (0.05 MG/KG, 7 TED DOSES PER WEEK)
     Route: 058
     Dates: start: 20181130
  44. LOVENOX [LEVOFLOXACIN] [Concomitant]
     Active Substance: LEVOFLOXACIN
     Indication: THROMBOSIS IN DEVICE
     Dosage: UNK
     Route: 065
  45. TEDUGLUTIDE [Suspect]
     Active Substance: TEDUGLUTIDE
     Dosage: 2.6 MILLIGRAM, 1X/DAY:QD
     Route: 058
     Dates: start: 20170217
  46. TEDUGLUTIDE [Suspect]
     Active Substance: TEDUGLUTIDE
     Dosage: 3.0 MILLIGRAM (0.05 MG/KG, 7 TED DOSES PER WEEK)
     Route: 058
     Dates: start: 20160404, end: 20160824
  47. TEDUGLUTIDE [Suspect]
     Active Substance: TEDUGLUTIDE
     Dosage: 3.0 MILLIGRAM (0.05 MG/KG, 7 TED DOSES PER WEEK)
     Route: 058
     Dates: start: 20160404, end: 20160824
  48. TEDUGLUTIDE [Suspect]
     Active Substance: TEDUGLUTIDE
     Dosage: 2.8 MILLIGRAM (0.05 MG/KG, 7 TED DOSES PER WEEK)
     Route: 058
     Dates: start: 20170214, end: 20170220
  49. TEDUGLUTIDE [Suspect]
     Active Substance: TEDUGLUTIDE
     Dosage: 2.4 MILLIGRAM (0.05 MG/KG, 7 TED DOSES PER WEEK)
     Route: 058
     Dates: start: 20181130
  50. TEDUGLUTIDE [Suspect]
     Active Substance: TEDUGLUTIDE
     Dosage: 2.6 MILLIGRAM, 1X/DAY:QD
     Route: 058
     Dates: start: 20160912, end: 20161206
  51. TEDUGLUTIDE [Suspect]
     Active Substance: TEDUGLUTIDE
     Dosage: 2.6 MILLIGRAM (0.05 MG/KG, 7 TED DOSES PER WEEK)
     Route: 058
     Dates: start: 20160909, end: 20160914
  52. TEDUGLUTIDE [Suspect]
     Active Substance: TEDUGLUTIDE
     Dosage: 2.8 MILLIGRAM (0.05 MG/KG, 7 TED DOSES PER WEEK)
     Route: 058
     Dates: start: 20170412, end: 20181129
  53. TEDUGLUTIDE [Suspect]
     Active Substance: TEDUGLUTIDE
     Indication: SHORT-BOWEL SYNDROME
     Dosage: 3 MILLIGRAM, 1X/DAY:QD (0.05 MG/KG, 7 TED DOSES PER WEEK)
     Route: 058
     Dates: start: 20160404, end: 20160911
  54. TEDUGLUTIDE [Suspect]
     Active Substance: TEDUGLUTIDE
     Dosage: 2.8 MILLIGRAM (0.05 MG/KG, 7 TED DOSES PER WEEK)
     Route: 058
     Dates: start: 20160825, end: 20160908
  55. TEDUGLUTIDE [Suspect]
     Active Substance: TEDUGLUTIDE
     Dosage: 2.6 MILLIGRAM (0.05 MG/KG, 7 TED DOSES PER WEEK)
     Route: 058
     Dates: start: 20160909, end: 20160914
  56. TEDUGLUTIDE [Suspect]
     Active Substance: TEDUGLUTIDE
     Dosage: 2.6 MILLIGRAM (0.05 MG/KG, 7 TED DOSES PER WEEK)
     Route: 058
     Dates: start: 20160909, end: 20160914
  57. TEDUGLUTIDE [Suspect]
     Active Substance: TEDUGLUTIDE
     Dosage: 2.8 MILLIGRAM (0.05 MG/KG, 7 TED DOSES PER WEEK)
     Route: 058
     Dates: start: 20160915, end: 20161107
  58. TEDUGLUTIDE [Suspect]
     Active Substance: TEDUGLUTIDE
     Dosage: 2.6 MILLIGRAM (0.05 MG/KG, 7 TED DOSES PER WEEK)
     Route: 058
     Dates: start: 20161108, end: 20161206
  59. TEDUGLUTIDE [Suspect]
     Active Substance: TEDUGLUTIDE
     Dosage: 2.6 MILLIGRAM (0.05 MG/KG, 7 TED DOSES PER WEEK)
     Route: 058
     Dates: start: 20161108, end: 20161206
  60. TEDUGLUTIDE [Suspect]
     Active Substance: TEDUGLUTIDE
     Dosage: 2.8 MILLIGRAM (0.05 MG/KG, 7 TED DOSES PER WEEK)
     Route: 058
     Dates: start: 20170214, end: 20170220
  61. POTASSIUM [Concomitant]
     Active Substance: POTASSIUM
     Indication: SUPPLEMENTATION THERAPY
     Dosage: 1200 MG, 3X/DAY:TID
     Route: 048
     Dates: start: 201612
  62. WARFARINE [Concomitant]
     Active Substance: WARFARIN
     Indication: THROMBOSIS PROPHYLAXIS
     Dosage: 1.50 MILLIGRAM, QD
     Route: 048
     Dates: start: 20191125

REACTIONS (9)
  - Polyneuropathy [Recovered/Resolved]
  - Anaemia [Recovered/Resolved]
  - Oedema peripheral [Recovered/Resolved]
  - Hypokalaemia [Recovered/Resolved]
  - Hypoproteinaemia [Recovered/Resolved]
  - Hepatic steatosis [Recovered/Resolved]
  - Hypomagnesaemia [Recovered/Resolved]
  - Hypoalbuminaemia [Recovered/Resolved]
  - Insomnia [Recovered/Resolved]

NARRATIVE: CASE EVENT DATE: 20160801
